FAERS Safety Report 8382658-8 (Version None)
Quarter: 2012Q2

REPORT INFORMATION
  Report Type: 
  Country: None (occurrence: None)
  Receive Date: 20120524
  Receipt Date: 20120516
  Transmission Date: 20120825
  Serious: Yes (Hospitalization)
  Sender: FDA-Public Use
  Company Number: US-US-EMD SERONO, INC.-7133773

PATIENT
  Sex: Male
  Weight: 104 kg

DRUGS (5)
  1. METFORMIN HCL [Concomitant]
     Indication: DIABETES MELLITUS
  2. ATENOLOL [Concomitant]
     Indication: HYPERTENSION
  3. FENOFIBRATE [Concomitant]
     Indication: BLOOD CHOLESTEROL INCREASED
  4. ASPIRIN [Concomitant]
     Indication: HYPERTENSION
  5. REBIF [Suspect]
     Indication: MULTIPLE SCLEROSIS
     Route: 058
     Dates: start: 20081219

REACTIONS (3)
  - CEREBROVASCULAR ACCIDENT [None]
  - BALANCE DISORDER [None]
  - CORONARY ARTERY OCCLUSION [None]
